FAERS Safety Report 15532622 (Version 1)
Quarter: 2018Q4

REPORT INFORMATION
  Report Type: Spontaneous
  Country: US (occurrence: US)
  Receive Date: 20181019
  Receipt Date: 20181019
  Transmission Date: 20190205
  Serious: No
  Sender: FDA-Public Use
  Company Number: US-BRISTOL-MYERS SQUIBB COMPANY-BMS-2018-096780

PATIENT
  Sex: Female

DRUGS (2)
  1. ELIQUIS [Suspect]
     Active Substance: APIXABAN
     Indication: PULMONARY EMBOLISM
     Route: 065
  2. ELIQUIS [Suspect]
     Active Substance: APIXABAN
     Indication: EMBOLISM VENOUS
     Dosage: 5 MG, BID
     Route: 048
     Dates: start: 201803

REACTIONS (8)
  - Erythema [Recovering/Resolving]
  - Vision blurred [Recovering/Resolving]
  - Insomnia [Recovering/Resolving]
  - Head discomfort [Recovering/Resolving]
  - Burning sensation [Recovering/Resolving]
  - Blood glucose increased [Recovering/Resolving]
  - Circumstance or information capable of leading to medication error [Recovering/Resolving]
  - Peripheral swelling [Recovering/Resolving]
